FAERS Safety Report 5031506-2 (Version None)
Quarter: 2006Q2

REPORT INFORMATION
  Report Type: 
  Country: None (occurrence: None)
  Receive Date: 20060616
  Receipt Date: 20060608
  Transmission Date: 20061013
  Serious: Yes (Other)
  Sender: FDA-Public Use
  Company Number: 2006S1000127

PATIENT
  Age: 64 Year
  Sex: Female
  Weight: 80.0145 kg

DRUGS (1)
  1. ACITRETIN [Suspect]
     Indication: PSORIASIS
     Dosage: 30 MG; QD; PO
     Route: 048
     Dates: start: 20050115

REACTIONS (3)
  - BLOOD TRIGLYCERIDES INCREASED [None]
  - DIABETES MELLITUS [None]
  - HYPERCHOLESTEROLAEMIA [None]
